FAERS Safety Report 22523487 (Version 1)
Quarter: 2023Q2

REPORT INFORMATION
  Report Type: Spontaneous
  Country: US (occurrence: US)
  Receive Date: 20230606
  Receipt Date: 20230606
  Transmission Date: 20230722
  Serious: No
  Sender: FDA-Public Use
  Company Number: US-PURACAP-US-2023EPCSPO00932

PATIENT
  Age: 59 Year
  Sex: Male

DRUGS (3)
  1. DOXYCYCLINE HYCLATE [Suspect]
     Active Substance: DOXYCYCLINE HYCLATE
     Indication: Hidradenitis
     Route: 065
  2. RIFAMPIN [Suspect]
     Active Substance: RIFAMPIN
     Indication: Hidradenitis
     Route: 065
  3. AUGMENTIN [Concomitant]
     Active Substance: AMOXICILLIN\CLAVULANATE POTASSIUM
     Indication: Hidradenitis
     Route: 065

REACTIONS (3)
  - Drug intolerance [Unknown]
  - Drug ineffective [Unknown]
  - Product use in unapproved indication [Unknown]
